FAERS Safety Report 9770319 (Version 3)
Quarter: 2014Q1

REPORT INFORMATION
  Report Type: Report from Study
  Country: US (occurrence: US)
  Receive Date: 20131218
  Receipt Date: 20140102
  Transmission Date: 20141002
  Serious: Yes (Other)
  Sender: FDA-Public Use
  Company Number: US-ACTELION-A-US2013-91251

PATIENT
  Age: 53 Week
  Sex: Male

DRUGS (1)
  1. ZAVESCA [Suspect]
     Indication: NIEMANN-PICK DISEASE
     Dosage: UNK
     Route: 048
     Dates: start: 20130319

REACTIONS (4)
  - Pyrexia [Recovering/Resolving]
  - Upper respiratory tract infection [Recovering/Resolving]
  - Sinusitis [Recovering/Resolving]
  - Pharyngeal disorder [Recovered/Resolved]
